FAERS Safety Report 13239788 (Version 4)
Quarter: 2019Q2

REPORT INFORMATION
  Report Type: Spontaneous
  Country: US (occurrence: US)
  Receive Date: 20170216
  Receipt Date: 20190410
  Transmission Date: 20190711
  Serious: Yes (Other)
  Sender: FDA-Public Use
  Company Number: US-PFIZER INC-2017061642

PATIENT
  Age: 61 Year
  Sex: Female

DRUGS (2)
  1. NIACIN. [Suspect]
     Active Substance: NIACIN
     Dosage: UNK
  2. NORVASC [Suspect]
     Active Substance: AMLODIPINE BESYLATE
     Dosage: 10 MG, 1X/DAY
     Route: 048
     Dates: start: 2012

REACTIONS (2)
  - Angioedema [Unknown]
  - Drug hypersensitivity [Unknown]
